FAERS Safety Report 20087798 (Version 1)
Quarter: 2021Q4

REPORT INFORMATION
  Report Type: Spontaneous
  Country: US (occurrence: None)
  Receive Date: 20211118
  Receipt Date: 20211118
  Transmission Date: 20220303
  Serious: Yes (Other)
  Sender: FDA-Public Use
  Company Number: None

PATIENT
  Age: 32 Year
  Sex: Female
  Weight: 110.43 kg

DRUGS (4)
  1. WILATE - VON WILLEBRAND FACTOR/COAGULATION FACTOR VIII COMPLEX (HUMAN) [Suspect]
     Active Substance: HUMAN COAGULATION FACTOR VIII/VON WILLEBRAND FACTOR COMPLEX
     Indication: Von Willebrand^s disease
     Dosage: FREQUENCY : AS NEEDED;?
     Route: 042
     Dates: start: 20211110, end: 20211117
  2. WILATE - VON WILLEBRAND FACTOR/COAGULATION FACTOR VIII COMPLEX (HUMAN) [Suspect]
     Active Substance: HUMAN COAGULATION FACTOR VIII/VON WILLEBRAND FACTOR COMPLEX
     Indication: Von Willebrand^s disease
     Dosage: FREQUENCY : AS NEEDED;?
     Route: 042
     Dates: start: 20211110, end: 20211117
  3. Wilate 505 RCoF x 1 vial [Concomitant]
     Dates: start: 20211110, end: 20211117
  4. Wilate 1030 RCoF x 3 vials [Concomitant]
     Dates: start: 20211110, end: 20211117

REACTIONS (5)
  - Chest pain [None]
  - Feeling hot [None]
  - Headache [None]
  - Back pain [None]
  - Respiratory rate increased [None]

NARRATIVE: CASE EVENT DATE: 20211117
